FAERS Safety Report 6425143-2 (Version None)
Quarter: 2009Q4

REPORT INFORMATION
  Report Type: 
  Country: None (occurrence: None)
  Receive Date: 20091029
  Receipt Date: 20090911
  Transmission Date: 20100525
  Serious: Yes (Hospitalization, Other)
  Sender: FDA-Public Use
  Company Number: 200917710US

PATIENT
  Age: 36 Year
  Sex: Female
  Weight: 83 kg

DRUGS (55)
  1. TAXOTERE [Suspect]
     Indication: BREAST CANCER
     Dosage: 75 MG/M2 Q3W IV
     Route: 042
     Dates: start: 20090805, end: 20090805
  2. CARBOPLATIN [Suspect]
     Indication: BREAST CANCER
  3. HERCEPTIN [Suspect]
     Indication: BREAST CANCER
  4. ANZEMET [Concomitant]
  5. ATIVAN [Concomitant]
  6. DIPHENHYDRAMINE HYDROCHLORIDE (BENADRYL) [Concomitant]
  7. CIMETIDINE [Concomitant]
  8. DECADRON [Concomitant]
  9. VITAMINS [Concomitant]
  10. CALCIUM [Concomitant]
  11. GINSENG EXTRACT [Concomitant]
  12. GINGER [Concomitant]
  13. PROCHLORPERAZINE [Concomitant]
  14. PARACETAMOL (TYLENOL EXTRA-STRENGTH) [Concomitant]
  15. NEUPOGEN [Concomitant]
  16. WARFARIN SODIUM [Concomitant]
  17. LOPERAMIDE HYDROCHLORIDE [Concomitant]
  18. IRON [Concomitant]
  19. PREMARIN [Concomitant]
  20. RED BLOOD CELLS [Concomitant]
  21. SULFAMETHOXAZOLE, TRIMETHOPRIM (SEPTRA) [Concomitant]
  22. PRILOSEC [Concomitant]
  23. METRONIDAZOLE [Concomitant]
  24. LASIX [Concomitant]
  25. ASCORBIC ACID (VITAMIN C) [Concomitant]
  26. AMBIEN [Concomitant]
  27. ENOXAPARIN SODIUM [Concomitant]
  28. INSULIN [Concomitant]
  29. ZOFRAN [Concomitant]
  30. MORPHINE [Concomitant]
  31. PEPCID [Concomitant]
  32. LINEZOLID [Concomitant]
  33. HYDROCODONE [Concomitant]
  34. MAGNESIUM SULFATE [Concomitant]
  35. ALBUMIN (ALBUMINA HUMANA) [Concomitant]
  36. HEPARIN [Concomitant]
  37. FENTANYL [Concomitant]
  38. GLICLAZIDE (DIAMEXON) [Concomitant]
  39. CIPROFLOXACIN [Concomitant]
  40. SALBUTAMOL (PROVENTIL) [Concomitant]
  41. HYDROCORTISONE SODIUM SUCCINATE (SOLU CORTEF) [Concomitant]
  42. VITAMINS NOS, MINERALS NOS, CARBOHYDRATE NOS, PROTEIN NOS, FATTY ACIDS [Concomitant]
  43. AMINO ACIDS NOS [Concomitant]
  44. MAGNESIUM CARBONATE, CALCIUM GLUCONATE, POTASSIUM CHLORIDE, SODIUM CHL [Concomitant]
  45. DEXTROSE [Concomitant]
  46. DROTRECOGIN ALFA [Concomitant]
  47. POLYVINYL ALCOHOL [Concomitant]
  48. SOLU-MEDROL [Concomitant]
  49. FAT EMULSIONS [Concomitant]
  50. SODIUM LACTATE, POTASSIUM CHLORIDE, CALCIUM CHLORIDE ANHYDROUS (LACTAT [Concomitant]
  51. AZITHROMYCIN [Concomitant]
  52. NOREPINEPHRINE BITARTRATE (LEVOPHED) [Concomitant]
  53. DOPAMINE HCL [Concomitant]
  54. PLASMA (PLASMA, FRESH FROZEN) [Concomitant]
  55. POTASSIUM CHLORIDE [Concomitant]

REACTIONS (22)
  - ABDOMINAL PAIN UPPER [None]
  - ARRHYTHMIA [None]
  - CAECITIS [None]
  - CHEST DISCOMFORT [None]
  - COLITIS ISCHAEMIC [None]
  - DIARRHOEA [None]
  - GASTROINTESTINAL NECROSIS [None]
  - GRANULOCYTOPENIA [None]
  - HAEMOGLOBIN DECREASED [None]
  - HYPERSENSITIVITY [None]
  - HYPOTENSION [None]
  - INFLAMMATION [None]
  - JAUNDICE [None]
  - LEUKOCYTOSIS [None]
  - LEUKOPENIA [None]
  - LIVER DISORDER [None]
  - LYMPHOPENIA [None]
  - NAUSEA [None]
  - PYREXIA [None]
  - TACHYCARDIA [None]
  - URTICARIA [None]
  - VOMITING [None]
